FAERS Safety Report 10379257 (Version 1)
Quarter: 2014Q3

REPORT INFORMATION
  Report Type: Spontaneous
  Country: US (occurrence: US)
  Receive Date: 20140812
  Receipt Date: 20140812
  Transmission Date: 20150326
  Serious: Yes (Other)
  Sender: FDA-Public Use
  Company Number: US-BRISTOL-MYERS SQUIBB COMPANY-19926500

PATIENT
  Age: 48 Year
  Sex: Female
  Weight: 92.89 kg

DRUGS (4)
  1. REYATAZ [Suspect]
     Active Substance: ATAZANAVIR SULFATE
  2. LETAIRIS [Suspect]
     Active Substance: AMBRISENTAN
     Indication: PORTOPULMONARY HYPERTENSION
     Dosage: DOSE REDUCE 5MG; INCREASED TO 10 MG ON 10OCT12,RECENT 06NOV12,03JAN13,04APR13
     Route: 048
     Dates: start: 20120915
  3. TRUVADA [Concomitant]
     Active Substance: EMTRICITABINE\TENOFOVIR DISOPROXIL FUMARATE
  4. NORVIR [Concomitant]
     Active Substance: RITONAVIR

REACTIONS (3)
  - Blood bilirubin increased [Recovering/Resolving]
  - Aspartate aminotransferase increased [Unknown]
  - Alanine aminotransferase increased [Unknown]

NARRATIVE: CASE EVENT DATE: 20121011
